FAERS Safety Report 13856032 (Version 2)
Quarter: 2017Q3

REPORT INFORMATION
  Report Type: Spontaneous
  Country: FR (occurrence: FR)
  Receive Date: 20170810
  Receipt Date: 20170911
  Transmission Date: 20171127
  Serious: Yes (Other)
  Sender: FDA-Public Use
  Company Number: FR-ABBVIE-17P-056-2067913-00

PATIENT
  Age: 12 Year
  Sex: Female

DRUGS (3)
  1. DEPAKINE [Suspect]
     Active Substance: VALPROATE SODIUM
     Route: 048
     Dates: start: 198101
  2. DEPAKINE [Suspect]
     Active Substance: VALPROATE SODIUM
     Route: 048
  3. DEPAKINE [Suspect]
     Active Substance: VALPROATE SODIUM
     Indication: EPILEPSY
     Dosage: DOSE: 2 COFFEE SPOONS IN THE MORNING, AT MIDDAY AND IN THE EVENING
     Route: 048
     Dates: start: 197911

REACTIONS (4)
  - Epilepsy [Unknown]
  - Malaise [Unknown]
  - Postictal state [Unknown]
  - Drug dose omission [Unknown]

NARRATIVE: CASE EVENT DATE: 1990
